FAERS Safety Report 5557613-3 (Version None)
Quarter: 2007Q4

REPORT INFORMATION
  Report Type: 
  Country: None (occurrence: None)
  Receive Date: 20071214
  Receipt Date: 20071206
  Transmission Date: 20080405
  Serious: Yes (Hospitalization)
  Sender: FDA-Public Use
  Company Number: B0488850A

PATIENT
  Age: 61 Year
  Sex: Male
  Weight: 68 kg

DRUGS (3)
  1. ARIXTRA [Suspect]
     Indication: PHLEBITIS
     Dosage: 7.5MG PER DAY
     Route: 058
     Dates: start: 20070901
  2. COTAREG [Concomitant]
     Dosage: 80MG PER DAY
     Route: 048
     Dates: start: 19970101
  3. LOVENOX [Concomitant]

REACTIONS (4)
  - EPISTAXIS [None]
  - INCORRECT DOSE ADMINISTERED [None]
  - INTENTIONAL DRUG MISUSE [None]
  - NASAL SEPTUM DISORDER [None]
